FAERS Safety Report 9571324 (Version 1)
Quarter: 2013Q1

REPORT INFORMATION
  Report Type: Spontaneous
  Country: US (occurrence: None)
  Receive Date: 20120510
  Receipt Date: 20120510
  Transmission Date: 20140127
  Serious: Yes (Other)
  Sender: FDA-Public Use
  Company Number: 2012SCPR003926

PATIENT
  Age: 58 Year
  Sex: Male

DRUGS (1)
  1. PROPAFENONE HCL ER [Suspect]
     Indication: ATRIAL FIBRILLATION
     Route: 048
     Dates: start: 201112

REACTIONS (1)
  - Vision blurred [None]
